FAERS Safety Report 9107336 (Version 1)
Quarter: 2013Q1

REPORT INFORMATION
  Report Type: Spontaneous
  Country: US (occurrence: US)
  Receive Date: 20130221
  Receipt Date: 20130221
  Transmission Date: 20140127
  Serious: No
  Sender: FDA-Public Use
  Company Number: US-009507513-1302USA009459

PATIENT
  Sex: 0

DRUGS (1)
  1. INTRONA [Suspect]

REACTIONS (2)
  - Chills [Unknown]
  - Pyrexia [Unknown]
